FAERS Safety Report 10601741 (Version 1)
Quarter: 2014Q4

REPORT INFORMATION
  Report Type: Report from Study
  Country: US (occurrence: US)
  Receive Date: 20141124
  Receipt Date: 20141124
  Transmission Date: 20150529
  Serious: Yes (Hospitalization, Other)
  Sender: FDA-Public Use
  Company Number: PHEH2014US023090

PATIENT
  Age: 50 Year
  Sex: Female

DRUGS (4)
  1. NEORAL [Suspect]
     Active Substance: CYCLOSPORINE
     Indication: PANCREAS TRANSPLANT
  2. CELLCEPT [Suspect]
     Active Substance: MYCOPHENOLATE MOFETIL\MYCOPHENOLATE MOFETIL HYDROCHLORIDE
     Indication: TRANSPLANT
     Route: 065
  3. NEORAL [Suspect]
     Active Substance: CYCLOSPORINE
     Indication: RENAL TRANSPLANT
     Dosage: 100 MG, BID
     Route: 048
  4. PREDNISONE. [Suspect]
     Active Substance: PREDNISONE
     Indication: PRODUCT USED FOR UNKNOWN INDICATION
     Route: 065

REACTIONS (11)
  - Escherichia urinary tract infection [Unknown]
  - Abdominal mass [Unknown]
  - Immunosuppressant drug level increased [Unknown]
  - Abdominal hernia [Unknown]
  - Coronary artery disease [Unknown]
  - Ovarian disorder [Unknown]
  - Hypotension [Unknown]
  - Acute kidney injury [Unknown]
  - Neutropenia [Unknown]
  - Weight increased [Unknown]
  - Incarcerated hernia [Unknown]

NARRATIVE: CASE EVENT DATE: 2006
